FAERS Safety Report 9076360 (Version 1)
Quarter: 2013Q1

REPORT INFORMATION
  Report Type: Report from Study
  Country: US (occurrence: US)
  Receive Date: 20130129
  Receipt Date: 20130129
  Transmission Date: 20140127
  Serious: No
  Sender: FDA-Public Use
  Company Number: US-ABBOTT-12P-163-0944902-00

PATIENT
  Age: 53 None
  Sex: Female
  Weight: 59.47 kg

DRUGS (2)
  1. HUMIRA 40 MG/ 0.8 ML PRE-FILLED SYRINGE [Suspect]
     Indication: PSORIATIC ARTHROPATHY
     Route: 058
     Dates: start: 20120408, end: 201205
  2. HUMIRA 40 MG/ 0.8 ML PRE-FILLED SYRINGE [Suspect]
     Route: 058
     Dates: start: 20120608

REACTIONS (4)
  - Blister [Recovered/Resolved]
  - Paronychia [Not Recovered/Not Resolved]
  - Eye infection [Not Recovered/Not Resolved]
  - Expired drug administered [Recovered/Resolved]
